FAERS Safety Report 6594939-9 (Version None)
Quarter: 2010Q1

REPORT INFORMATION
  Report Type: 
  Country: None (occurrence: None)
  Receive Date: 20100222
  Receipt Date: 20100216
  Transmission Date: 20100710
  Serious: Yes (Hospitalization)
  Sender: FDA-Public Use
  Company Number: FR-GILEAD-2010-0026861

PATIENT
  Sex: Male

DRUGS (10)
  1. TRUVADA [Suspect]
     Indication: HIV INFECTION
     Route: 064
     Dates: end: 20081101
  2. BLINDED TMC278 [Concomitant]
     Indication: HIV INFECTION
     Dates: start: 20081126, end: 20090422
  3. IMPLANON [Concomitant]
     Indication: CONTRACEPTION
  4. PARACETAMOL [Concomitant]
     Indication: PAIN
  5. ZIDOVUDINE WITH LAMIVIDUNE [Concomitant]
     Indication: HIV INFECTION
  6. SAQUINAVIR [Concomitant]
     Indication: HIV INFECTION
  7. RITONAVIR [Concomitant]
     Indication: HIV INFECTION
  8. ENOXAPARIN SODIUM [Concomitant]
     Indication: PROPHYLAXIS
  9. ZIDOVUDINE [Concomitant]
     Indication: PROPHYLAXIS AGAINST HIV INFECTION
  10. FERROUS SULFATE TAB [Concomitant]
     Indication: ANAEMIA

REACTIONS (2)
  - NEONATAL ASPIRATION [None]
  - NEONATAL RESPIRATORY DISTRESS SYNDROME [None]
